FAERS Safety Report 12851195 (Version 1)
Quarter: 2016Q4

REPORT INFORMATION
  Report Type: Spontaneous
  Country: US (occurrence: US)
  Receive Date: 20161015
  Receipt Date: 20161015
  Transmission Date: 20170207
  Serious: No
  Sender: FDA-Public Use
  Company Number: US-009507513-1610USA001596

PATIENT
  Sex: Female

DRUGS (2)
  1. KEYTRUDA [Suspect]
     Active Substance: PEMBROLIZUMAB
     Indication: LUNG NEOPLASM MALIGNANT
     Dosage: 5 TREATMENTS
     Route: 042
  2. LOVENOX [Concomitant]
     Active Substance: ENOXAPARIN SODIUM

REACTIONS (2)
  - Rash [Unknown]
  - Product use issue [Unknown]

NARRATIVE: CASE EVENT DATE: 201609
